FAERS Safety Report 5600970-X (Version None)
Quarter: 2008Q1

REPORT INFORMATION
  Report Type: 
  Country: None (occurrence: None)
  Receive Date: 20080124
  Receipt Date: 20080119
  Transmission Date: 20080703
  Serious: Yes (Death)
  Sender: FDA-Public Use
  Company Number: PHBS2008BR01104

PATIENT
  Age: 85 Year
  Sex: Female

DRUGS (1)
  1. DIOVAN HCT [Suspect]
     Dosage: VALS 160 / HCT 12.5 MG/DAY
     Route: 048

REACTIONS (1)
  - DEATH [None]
